FAERS Safety Report 8206941-1 (Version None)
Quarter: 2012Q1

REPORT INFORMATION
  Report Type: 
  Country: None (occurrence: None)
  Receive Date: 20120312
  Receipt Date: 20120228
  Transmission Date: 20120608
  Serious: Yes (Hospitalization)
  Sender: FDA-Public Use
  Company Number: ES-DEXPHARM-20120073

PATIENT
  Age: 39 Year
  Sex: Male

DRUGS (8)
  1. ATENOLOL [Concomitant]
  2. SIMVASTATIN [Concomitant]
  3. OMEPRAZOLE [Suspect]
     Dosage: 40 MG MILLIGRAM(S), 1 IN 1 D
  4. LOSARTAN POTASSIUM [Concomitant]
  5. HYDROCHLOROTHIAZIDE [Concomitant]
  6. ASPIRIN [Concomitant]
  7. AMLODIPINE [Concomitant]
  8. ACENOCOUMAROL [Concomitant]

REACTIONS (5)
  - HYPOCALCAEMIA [None]
  - HYPOPHOSPHATAEMIA [None]
  - HYPOMAGNESAEMIA [None]
  - HYPOKALAEMIA [None]
  - MUSCLE TWITCHING [None]
